FAERS Safety Report 9036150 (Version 1)
Quarter: 2013Q1

REPORT INFORMATION
  Report Type: Report from Study
  Country: US (occurrence: US)
  Receive Date: 20130129
  Receipt Date: 20130129
  Transmission Date: 20140127
  Serious: No
  Sender: FDA-Public Use
  Company Number: US-ABBOTT-12P-163-0920656-00

PATIENT
  Age: 42 Year
  Sex: Female

DRUGS (5)
  1. HUMIRA 40 MG/0.8 ML PEN [Suspect]
     Indication: PSORIASIS
     Dosage: INITIAL DOSE
     Route: 058
     Dates: start: 20120330, end: 20120330
  2. HUMIRA 40 MG/0.8 ML PEN [Suspect]
     Route: 058
  3. RX VITAMINS [Concomitant]
     Indication: PRODUCT USED FOR UNKNOWN INDICATION
  4. BACTRIM [Concomitant]
     Indication: PROPHYLAXIS
  5. 20 UNKNOWN MEDICATIONS [Concomitant]
     Indication: PRODUCT USED FOR UNKNOWN INDICATION

REACTIONS (3)
  - Injection site pain [Recovered/Resolved]
  - Injection site haemorrhage [Unknown]
  - Pain in extremity [Unknown]
